FAERS Safety Report 8905878 (Version 1)
Quarter: 2012Q4

REPORT INFORMATION
  Report Type: 
  Country: US (occurrence: US)
  Receive Date: 20121113
  Receipt Date: 20121113
  Transmission Date: 20130627
  Serious: No
  Sender: FDA-Public Use
  Company Number: US-ASTRAZENECA-2012SE84613

PATIENT
  Age: 60 Year
  Sex: Male

DRUGS (13)
  1. NEXIUM [Suspect]
     Route: 048
  2. LISINOPRIL [Suspect]
     Route: 048
  3. ALBUTEROL SULFATE [Concomitant]
  4. DICLOFENAC SODIUM [Concomitant]
  5. PHENYLEPHRINE/DIPHENHYDRAMINE [Concomitant]
  6. PREDNISONE [Concomitant]
  7. SIMVASTATIN [Concomitant]
  8. TRAZODONE HCL [Concomitant]
  9. HYDROCODONE BIT/ACETAMINOPHEN [Concomitant]
  10. TIOTROPIUM BROMIDE [Concomitant]
  11. VICODIN [Concomitant]
  12. SPIRIVA [Concomitant]
  13. ROBITUSSIN [Concomitant]

REACTIONS (7)
  - Diabetes mellitus [Unknown]
  - Hypertension [Unknown]
  - Insomnia [Unknown]
  - BARRETTS ESOPHAGITIS [Unknown]
  - Chronic obstructive pulmonary disease [Unknown]
  - Arthralgia [Unknown]
  - Type V hyperlipidaemia [Unknown]
